FAERS Safety Report 20669488 (Version 1)
Quarter: 2022Q2

REPORT INFORMATION
  Report Type: Spontaneous
  Country: CN (occurrence: CN)
  Receive Date: 20220404
  Receipt Date: 20220404
  Transmission Date: 20220721
  Serious: Yes (Other)
  Sender: FDA-Public Use
  Company Number: CN-BAXTER-2022BAX007159

PATIENT
  Age: 15 Year
  Sex: Male
  Weight: 71 kg

DRUGS (25)
  1. CYCLOPHOSPHAMIDE [Suspect]
     Active Substance: CYCLOPHOSPHAMIDE
     Indication: Gene mutation identification test positive
     Dosage: 0.9% SODIUM CHLORIDE INJECTION (500 ML) + CYCLOPHOSPHAMIDE FOR INJECTION (1300 MG)
     Route: 041
     Dates: start: 20220207, end: 20220207
  2. CYCLOPHOSPHAMIDE [Suspect]
     Active Substance: CYCLOPHOSPHAMIDE
     Indication: B-cell type acute leukaemia
     Route: 041
     Dates: start: 20220225, end: 20220225
  3. CYCLOPHOSPHAMIDE [Suspect]
     Active Substance: CYCLOPHOSPHAMIDE
     Dosage: DOSE INTRODUCED: SODIUM CHLORIDE INJECTION + CYCLOPHOSPHAMIDE FOR INJECTION
     Route: 041
  4. SODIUM CHLORIDE [Suspect]
     Active Substance: SODIUM CHLORIDE
     Indication: Medication dilution
     Dosage: 0.9% SODIUM CHLORIDE INJECTION (500 ML) + CYCLOPHOSPHAMIDE FOR INJECTION (1300 MG)
     Route: 041
     Dates: start: 20220207, end: 20220225
  5. SODIUM CHLORIDE [Suspect]
     Active Substance: SODIUM CHLORIDE
     Dosage: 0.9% SODIUM CHLORIDE INJECTION (100 ML) + DAUNORUBICIN HYDROCHLORIDE FOR INJECTION (70 MG)
     Route: 041
     Dates: start: 20220214, end: 20220214
  6. SODIUM CHLORIDE [Suspect]
     Active Substance: SODIUM CHLORIDE
     Dosage: SODIUM CHLORIDE INJECTION (90 ML)+ METHOTREXATE FOR INJECTION (10 MG)
     Route: 037
     Dates: start: 20220213, end: 20220221
  7. SODIUM CHLORIDE [Suspect]
     Active Substance: SODIUM CHLORIDE
     Dosage: SODIUM CHLORIDE INJECTION (90 ML)+ CYTARABINE HYDROCHLORIDE FOR INJECTION (50 MG)
     Route: 037
     Dates: start: 20220213, end: 20220221
  8. SODIUM CHLORIDE [Suspect]
     Active Substance: SODIUM CHLORIDE
     Dosage: 0.9% SODIUM CHLORIDE INJECTION (20 ML) + VINCRISTINE SULFATE FOR INJECTION (2 MG)
     Route: 042
     Dates: start: 20220207, end: 20220214
  9. SODIUM CHLORIDE [Suspect]
     Active Substance: SODIUM CHLORIDE
     Dosage: DOSE REINTRODUCED: 0.9% SODIUM CHLORIDE INJECTION + CYCLOPHOSPHAMIDE FOR INJECTION
     Route: 041
  10. SODIUM CHLORIDE [Suspect]
     Active Substance: SODIUM CHLORIDE
     Dosage: DOSE REINTRODUCED: 0.9% SODIUM CHLORIDE INJECTION + DAUNORUBICIN HYDROCHLORIDE FOR INJECTION
     Route: 041
  11. SODIUM CHLORIDE [Suspect]
     Active Substance: SODIUM CHLORIDE
     Dosage: DOSE REINTRODUCED: SODIUM CHLORIDE INJECTION + METHOTREXATE FOR INJECTION
     Route: 037
  12. SODIUM CHLORIDE [Suspect]
     Active Substance: SODIUM CHLORIDE
     Dosage: DOSE REINTRODUCED: SODIUM CHLORIDE INJECTION + CYTARABINE HYDROCHLORIDE FOR INJECTION
     Route: 037
  13. SODIUM CHLORIDE [Suspect]
     Active Substance: SODIUM CHLORIDE
     Dosage: DOSE REINTRODUCED: 0.9% SODIUM CHLORIDE INJECTION + VINCRISTINE SULFATE FOR INJECTION
     Route: 042
  14. DEXTROSE [Suspect]
     Active Substance: DEXTROSE
     Indication: Medication dilution
     Dosage: GLUCOSE INJECTION (100 ML) + CYTARABINE HYDROCHLORIDE FOR INJECTION (85 MG)
     Route: 041
     Dates: start: 20220225, end: 20220303
  15. DEXTROSE [Suspect]
     Active Substance: DEXTROSE
     Dosage: DOSE REINTRODUCED: GLUCOSE INJECTION + CYTARABINE HYDROCHLORIDE FOR INJECTION
     Route: 041
  16. CYTARABINE HYDROCHLORIDE [Suspect]
     Active Substance: CYTARABINE HYDROCHLORIDE
     Indication: Gene mutation identification test positive
     Dosage: SODIUM CHLORIDE INJECTION (90 ML)+ CYTARABINE HYDROCHLORIDE FOR INJECTION (50 MG)
     Route: 037
     Dates: start: 20220213, end: 20220221
  17. CYTARABINE HYDROCHLORIDE [Suspect]
     Active Substance: CYTARABINE HYDROCHLORIDE
     Indication: B-cell type acute leukaemia
     Dosage: GLUCOSE INJECTION 100 ML + CYTARABINE HYDROCHLORIDE FOR INJECTION 85 MG
     Route: 041
     Dates: start: 20220225, end: 20220303
  18. CYTARABINE HYDROCHLORIDE [Suspect]
     Active Substance: CYTARABINE HYDROCHLORIDE
     Dosage: DOSE REINTRODUCED: SODIUM CHLORIDE INJECTION + CYTARABINE HYDROCHLORIDE FOR INJECTION
     Route: 037
  19. CYTARABINE HYDROCHLORIDE [Suspect]
     Active Substance: CYTARABINE HYDROCHLORIDE
     Dosage: DOSE REINTRODUCED: GLUCOSE INJECTION + CYTARABINE HYDROCHLORIDE FOR INJECTION
     Route: 041
  20. DAUNORUBICIN HYDROCHLORIDE [Suspect]
     Active Substance: DAUNORUBICIN HYDROCHLORIDE
     Indication: Gene mutation identification test positive
     Dosage: 0.9% SODIUM CHLORIDE INJECTION (100 ML) + DAUNORUBICIN HYDROCHLORIDE FOR INJECTION (70 MG)
     Route: 041
     Dates: start: 20220214, end: 20220214
  21. DAUNORUBICIN HYDROCHLORIDE [Suspect]
     Active Substance: DAUNORUBICIN HYDROCHLORIDE
     Indication: B-cell type acute leukaemia
     Dosage: DOSE INTRODUCED: SODIUM CHLORIDE INJECTION (100 ML) + DAUNORUBICIN HYDROCHLORIDE FOR INJECTION
     Route: 041
  22. METHOTREXATE [Suspect]
     Active Substance: METHOTREXATE
     Indication: Gene mutation identification test positive
     Dosage: SODIUM CHLORIDE INJECTION (90 ML)+ METHOTREXATE FOR INJECTION (10 MG)
     Route: 037
     Dates: start: 20220213, end: 20220221
  23. METHOTREXATE [Suspect]
     Active Substance: METHOTREXATE
     Indication: B-cell type acute leukaemia
     Dosage: DOSE REINTRODUCED: SODIUM CHLORIDE INJECTION + METHOTREXATE FOR INJECTION
     Route: 037
  24. VINCRISTINE SULFATE [Suspect]
     Active Substance: VINCRISTINE SULFATE
     Indication: Gene mutation identification test positive
     Dosage: 0.9% SODIUM CHLORIDE INJECTION (20 ML) + VINCRISTINE SULFATE FOR INJECTION (2 MG)
     Route: 042
     Dates: start: 20220207, end: 20220214
  25. VINCRISTINE SULFATE [Suspect]
     Active Substance: VINCRISTINE SULFATE
     Indication: B-cell type acute leukaemia
     Dosage: DOSE REINTRODUCED: 0.9% SODIUM CHLORIDE INJECTION + VINCRISTINE SULFATE FOR INJECTION
     Route: 042

REACTIONS (1)
  - Myelosuppression [Recovering/Resolving]

NARRATIVE: CASE EVENT DATE: 20220314
